FAERS Safety Report 8925559 (Version 1)
Quarter: 2012Q4

REPORT INFORMATION
  Report Type: 
  Country: US (occurrence: US)
  Receive Date: 20121126
  Receipt Date: 20121126
  Transmission Date: 20130627
  Serious: Yes (Hospitalization)
  Sender: FDA-Public Use
  Company Number: US-BAYER-2012-120616

PATIENT
  Age: 49 Year
  Sex: Female
  Weight: 58.5 kg

DRUGS (6)
  1. YAZ [Suspect]
  2. BEYAZ [Suspect]
  3. ALPRAZOLAM [Concomitant]
     Dosage: 0.5 mg, UNK
     Dates: start: 20110829
  4. CITALOPRAM [Concomitant]
     Dosage: 10 mg, UNK
     Dates: start: 20111007
  5. CITALOPRAM [Concomitant]
     Dosage: 10 mg, UNK
     Dates: start: 20111121
  6. CELEXA [Concomitant]
     Indication: DEPRESSION
     Dosage: 20 mg, daily

REACTIONS (1)
  - Pulmonary embolism [None]
